FAERS Safety Report 7687392-5 (Version None)
Quarter: 2011Q3

REPORT INFORMATION
  Report Type: 
  Country: None (occurrence: None)
  Receive Date: 20110816
  Receipt Date: 20110808
  Transmission Date: 20111222
  Serious: Yes (Hospitalization)
  Sender: FDA-Public Use
  Company Number: JP-ABBOTT-11P-087-0844669-00

PATIENT
  Sex: Male
  Weight: 60.6 kg

DRUGS (15)
  1. HUMIRA [Suspect]
     Dates: start: 20110309, end: 20110309
  2. VITAMIN B COMPLEX CAP [Concomitant]
     Indication: ARTHRITIS
     Route: 048
  3. MESALAMINE [Concomitant]
     Indication: CROHN'S DISEASE
     Route: 048
  4. HERBAL MEDICINE (DAIKENCHUTO) [Concomitant]
     Indication: CROHN'S DISEASE
     Route: 048
  5. CLOSTRIDIUM BUTYRICUM [Concomitant]
     Indication: CROHN'S DISEASE
     Route: 048
  6. HUMIRA [Suspect]
     Indication: CROHN'S DISEASE
     Route: 058
     Dates: start: 20110223, end: 20110223
  7. LAFUTIDINE [Concomitant]
     Indication: PRODUCT USED FOR UNKNOWN INDICATION
     Route: 048
  8. ISONIAZID [Concomitant]
     Indication: ANTIBIOTIC PROPHYLAXIS
     Dates: start: 20071128, end: 20090512
  9. JUZENTAIHOTO [Concomitant]
     Indication: PRODUCT USED FOR UNKNOWN INDICATION
     Route: 048
  10. TPN [Concomitant]
     Indication: CROHN'S DISEASE
     Route: 048
  11. HUMIRA [Suspect]
     Dates: start: 20110323, end: 20110518
  12. PREDNISOLONE [Concomitant]
     Indication: CROHN'S DISEASE
     Route: 048
  13. SODIUM RISEDRONATE HYDRATE [Concomitant]
     Indication: PRODUCT USED FOR UNKNOWN INDICATION
     Route: 048
  14. KILLED ESCHERICHIA COLI SUSPENSION/HYDROCORTISONE [Concomitant]
     Indication: ANAL ABSCESS
     Route: 061
  15. AZATHIOPRINE [Concomitant]
     Indication: CROHN'S DISEASE
     Route: 048

REACTIONS (2)
  - WEIGHT DECREASED [None]
  - CLOSTRIDIAL INFECTION [None]
